FAERS Safety Report 6772926-5 (Version None)
Quarter: 2010Q2

REPORT INFORMATION
  Report Type: 
  Country: None (occurrence: None)
  Receive Date: 20100616
  Receipt Date: 20100414
  Transmission Date: 20101027
  Serious: No
  Sender: FDA-Public Use
  Company Number: US-JNJFOC-20100403784

PATIENT
  Age: 30 Year
  Sex: Female

DRUGS (3)
  1. INVEGA [Suspect]
     Indication: SCHIZOPHRENIA
     Dosage: 6-9 MG, 1 TABLET PER DAY.
     Route: 048
  2. CELEXA [Concomitant]
     Indication: DEPRESSION
     Route: 048
  3. ATIVAN [Concomitant]
     Route: 048

REACTIONS (2)
  - AMENORRHOEA [None]
  - TREMOR [None]
